FAERS Safety Report 5417062-5 (Version None)
Quarter: 2007Q3

REPORT INFORMATION
  Report Type: 
  Country: None (occurrence: None)
  Receive Date: 20070816
  Receipt Date: 20070815
  Transmission Date: 20080115
  Serious: Yes (Congenital Anomaly, Other)
  Sender: FDA-Public Use
  Company Number: GB-BRISTOL-MYERS SQUIBB COMPANY-13488366

PATIENT
  Age: 4 Decade
  Sex: Female

DRUGS (3)
  1. HYDREA [Suspect]
     Indication: SICKLE CELL ANAEMIA
     Route: 048
  2. PARACETAMOL [Concomitant]
  3. PENICILLIN G [Concomitant]

REACTIONS (3)
  - ABORTION INDUCED [None]
  - FOETAL CHROMOSOME ABNORMALITY [None]
  - PREGNANCY [None]
